FAERS Safety Report 8139258-4 (Version None)
Quarter: 2012Q1

REPORT INFORMATION
  Report Type: 
  Country: None (occurrence: None)
  Receive Date: 20120215
  Receipt Date: 20120209
  Transmission Date: 20120608
  Serious: Yes (Hospitalization)
  Sender: FDA-Public Use
  Company Number: JP-B.I. PHARMACEUTICALS,INC./RIDGEFIELD-2012-BP-00997NB

PATIENT
  Sex: Male
  Weight: 65 kg

DRUGS (9)
  1. LASIX [Concomitant]
     Indication: CARDIAC FAILURE CONGESTIVE
     Dosage: 20 MG
     Route: 048
     Dates: start: 20110722
  2. BISOPROLOL FUMARATE [Concomitant]
     Indication: ATRIAL FLUTTER
     Dosage: 0.625 MG
     Route: 048
     Dates: start: 20110812, end: 20110928
  3. BEPRICOR [Concomitant]
     Indication: ATRIAL FIBRILLATION
     Dosage: 100 MG
     Route: 048
     Dates: start: 20110928, end: 20111007
  4. WARFARIN SODIUM [Concomitant]
     Indication: ATRIAL FIBRILLATION
     Dosage: 5 MG
     Route: 048
     Dates: start: 20110922
  5. PRADAXA [Suspect]
     Indication: ATRIAL FIBRILLATION
     Dosage: 220 MG
     Route: 048
     Dates: start: 20110622, end: 20110928
  6. ALDACTONE [Concomitant]
     Indication: CARDIAC FAILURE CONGESTIVE
     Dosage: 25 MG
     Route: 048
     Dates: start: 20110722
  7. TAMBOCOR [Concomitant]
     Indication: ATRIAL FLUTTER
     Dosage: 100 MG
     Route: 048
     Dates: start: 20110722, end: 20110818
  8. ZOLPIDEM [Concomitant]
     Dosage: 5 MG
     Route: 065
     Dates: start: 20110722
  9. LANSOPRAZOLE [Concomitant]
     Dosage: 15 MG
     Route: 048
     Dates: start: 20110722

REACTIONS (3)
  - THROMBOSIS [None]
  - CARDIAC FAILURE CHRONIC [None]
  - ATRIAL FIBRILLATION [None]
